FAERS Safety Report 16838177 (Version 1)
Quarter: 2019Q3

REPORT INFORMATION
  Report Type: Spontaneous
  Country: DE (occurrence: DE)
  Receive Date: 20190923
  Receipt Date: 20190923
  Transmission Date: 20191005
  Serious: Yes (Congenital Anomaly)
  Sender: FDA-Public Use
  Company Number: DE-ACCORD-155470

PATIENT
  Sex: Female
  Weight: 3.26 kg

DRUGS (2)
  1. FEMIBION [Concomitant]
     Indication: PROPHYLAXIS OF NEURAL TUBE DEFECT
     Route: 064
     Dates: start: 20180107, end: 20181009
  2. LEVETIRACETAM. [Suspect]
     Active Substance: LEVETIRACETAM
     Indication: EPILEPSY
     Dosage: 3000 MG/D (UNTIL 2000)/UNTIL GW 16: 3000 MG DAILY THAN REDUCED TO 2000 MG/D
     Route: 064
     Dates: start: 20180107, end: 20181009

REACTIONS (4)
  - Infantile haemangioma [Unknown]
  - Atrial septal defect [Unknown]
  - Arteriovenous malformation [Not Recovered/Not Resolved]
  - Foetal exposure during pregnancy [Unknown]
